FAERS Safety Report 11061048 (Version 2)
Quarter: 2015Q2

REPORT INFORMATION
  Report Type: Spontaneous
  Country: GB (occurrence: GB)
  Receive Date: 20150424
  Receipt Date: 20150515
  Transmission Date: 20150821
  Serious: Yes (Other)
  Sender: FDA-Public Use
  Company Number: GB-ROCHE-1564946

PATIENT
  Age: 70 Year
  Sex: Male

DRUGS (1)
  1. VEMURAFENIB [Suspect]
     Active Substance: VEMURAFENIB
     Indication: METASTATIC MALIGNANT MELANOMA
     Route: 065

REACTIONS (4)
  - Malaise [Recovering/Resolving]
  - Rash [Recovering/Resolving]
  - VIIth nerve paralysis [Recovered/Resolved]
  - Rhabdomyolysis [Recovered/Resolved]
